FAERS Safety Report 6198639-9 (Version None)
Quarter: 2009Q2

REPORT INFORMATION
  Report Type: 
  Country: None (occurrence: None)
  Receive Date: 20090521
  Receipt Date: 20090512
  Transmission Date: 20091009
  Serious: Yes (Other)
  Sender: FDA-Public Use
  Company Number: US-JNJCH-2009013215

PATIENT
  Age: 74 Year
  Sex: Female
  Weight: 84.4 kg

DRUGS (1)
  1. VISINE-A [Suspect]
     Indication: EYE PRURITUS
     Dosage: TEXT:2 DROPS ONE TIME
     Route: 047
     Dates: start: 20090508, end: 20090508

REACTIONS (4)
  - ABNORMAL SENSATION IN EYE [None]
  - EYE IRRITATION [None]
  - EYE PRURITUS [None]
  - VISION BLURRED [None]
